FAERS Safety Report 24648981 (Version 1)
Quarter: 2024Q4

REPORT INFORMATION
  Report Type: Spontaneous
  Country: US (occurrence: US)
  Receive Date: 20241121
  Receipt Date: 20241121
  Transmission Date: 20250114
  Serious: No
  Sender: MYCOVIA PHARMACEUTICALS, INC.
  Company Number: US-MYCOVIA PHARMACEUTICALS, INC.-US-MYC-24-00004

PATIENT

DRUGS (3)
  1. VIVJOA [Suspect]
     Active Substance: OTESECONAZOLE
     Indication: Vulvovaginal candidiasis
     Dosage: 600 MILLIGRAM, SINGLE
     Route: 048
     Dates: start: 20240418
  2. VIVJOA [Suspect]
     Active Substance: OTESECONAZOLE
     Dosage: 450 MILLIGRAM, SINGLE
     Route: 048
     Dates: start: 20240419
  3. VIVJOA [Suspect]
     Active Substance: OTESECONAZOLE
     Dosage: UNK

REACTIONS (6)
  - Dyspnoea [Recovered/Resolved]
  - Urticaria [Recovered/Resolved]
  - Pruritus [Recovered/Resolved]
  - Nasopharyngitis [Not Recovered/Not Resolved]
  - Dizziness [Not Recovered/Not Resolved]
  - Vision blurred [Not Recovered/Not Resolved]

NARRATIVE: CASE EVENT DATE: 20240401
